FAERS Safety Report 6393290-X (Version None)
Quarter: 2009Q4

REPORT INFORMATION
  Report Type: 
  Country: None (occurrence: None)
  Receive Date: 20091008
  Receipt Date: 20090924
  Transmission Date: 20100525
  Serious: No
  Sender: FDA-Public Use
  Company Number: PHEH2009US12367

PATIENT
  Sex: Female

DRUGS (1)
  1. TASIGNA [Suspect]
     Dosage: 400 MG, BID
     Route: 048

REACTIONS (5)
  - HEADACHE [None]
  - MEDICATION ERROR [None]
  - MUSCLE SPASMS [None]
  - NAUSEA [None]
  - RASH [None]
